FAERS Safety Report 11682150 (Version 2)
Quarter: 2015Q4

REPORT INFORMATION
  Report Type: Spontaneous
  Country: DE (occurrence: DE)
  Receive Date: 20151029
  Receipt Date: 20151125
  Transmission Date: 20160304
  Serious: Yes (Hospitalization)
  Sender: FDA-Public Use
  Company Number: DE-BIOGENIDEC-2015BI141706

PATIENT
  Age: 34 Year
  Sex: Female

DRUGS (3)
  1. INUVAIR SPRAY [Concomitant]
     Indication: ASTHMA
  2. TYSABRI [Suspect]
     Active Substance: NATALIZUMAB
     Indication: RELAPSING-REMITTING MULTIPLE SCLEROSIS
     Route: 042
     Dates: end: 201508
  3. TYSABRI [Suspect]
     Active Substance: NATALIZUMAB
     Indication: RELAPSING-REMITTING MULTIPLE SCLEROSIS
     Route: 042
     Dates: start: 200711

REACTIONS (2)
  - Invasive lobular breast carcinoma [Recovered/Resolved with Sequelae]
  - Prescribed underdose [Recovered/Resolved]
